FAERS Safety Report 9374519 (Version 1)
Quarter: 2013Q2

REPORT INFORMATION
  Report Type: Spontaneous
  Country: GB (occurrence: GB)
  Receive Date: 20130628
  Receipt Date: 20130628
  Transmission Date: 20140414
  Serious: Yes (Other)
  Sender: FDA-Public Use
  Company Number: PHFR2012GB006521

PATIENT
  Age: 28 Year
  Sex: Female

DRUGS (1)
  1. CLOZARIL [Suspect]
     Indication: SCHIZOPHRENIA
     Dosage: 150 MG, QD
     Route: 048
     Dates: start: 20121104

REACTIONS (4)
  - Mean cell volume increased [Not Recovered/Not Resolved]
  - Obesity [Unknown]
  - Mean cell haemoglobin increased [Not Recovered/Not Resolved]
  - Vitamin B12 decreased [Unknown]
